FAERS Safety Report 8333981-4 (Version None)
Quarter: 2012Q2

REPORT INFORMATION
  Report Type: 
  Country: None (occurrence: None)
  Receive Date: 20120503
  Receipt Date: 20120423
  Transmission Date: 20120825
  Serious: Yes (Death, Hospitalization)
  Sender: FDA-Public Use
  Company Number: GB-TEVA-334487ISR

PATIENT
  Age: 82 Year
  Sex: Female
  Weight: 45.2 kg

DRUGS (6)
  1. FUROSEMIDE [Concomitant]
  2. WARFARIN SODIUM [Suspect]
     Indication: ATRIAL FIBRILLATION
     Dosage: 4.5MG AND 5.5MG ON ALTERNATE DAYS
     Route: 048
     Dates: start: 19790101, end: 20120331
  3. ALBUTEROL [Concomitant]
  4. SIMVASTATIN [Concomitant]
  5. ACETAMINOPHEN [Concomitant]
  6. SPIRONOLACTONE [Concomitant]

REACTIONS (8)
  - RIB FRACTURE [None]
  - HAEMORRHAGIC DISORDER [None]
  - INTERNATIONAL NORMALISED RATIO INCREASED [None]
  - SUBDURAL HAEMORRHAGE [None]
  - WRIST FRACTURE [None]
  - HAEMOTHORAX [None]
  - HAEMATOMA [None]
  - FALL [None]
